FAERS Safety Report 12714856 (Version 1)
Quarter: 2016Q3

REPORT INFORMATION
  Report Type: Spontaneous
  Country: CN (occurrence: CN)
  Receive Date: 20160905
  Receipt Date: 20160905
  Transmission Date: 20161109
  Serious: Yes (Other)
  Sender: FDA-Public Use
  Company Number: CN-JNJFOC-20160902735

PATIENT
  Age: 39 Year
  Sex: Male
  Weight: 72 kg

DRUGS (7)
  1. VALPROATE MAGNESIUM [Concomitant]
     Active Substance: VALPROATE MAGNESIUM
     Indication: MENTAL DISORDER
     Route: 048
     Dates: start: 20150603, end: 201506
  2. PALIPERIDONE. [Suspect]
     Active Substance: PALIPERIDONE
     Indication: MENTAL DISORDER
     Route: 048
     Dates: start: 201506, end: 201506
  3. LITHIUM CARBONATE. [Concomitant]
     Active Substance: LITHIUM CARBONATE
     Indication: MENTAL DISORDER
     Route: 048
     Dates: start: 201506, end: 20150626
  4. PALIPERIDONE. [Suspect]
     Active Substance: PALIPERIDONE
     Indication: MENTAL DISORDER
     Route: 048
     Dates: start: 201506, end: 20150626
  5. PALIPERIDONE. [Suspect]
     Active Substance: PALIPERIDONE
     Indication: MENTAL DISORDER
     Route: 048
     Dates: start: 20150601, end: 201506
  6. VALPROATE MAGNESIUM [Concomitant]
     Active Substance: VALPROATE MAGNESIUM
     Indication: MENTAL DISORDER
     Route: 048
     Dates: start: 201506, end: 20150626
  7. LITHIUM CARBONATE. [Concomitant]
     Active Substance: LITHIUM CARBONATE
     Indication: MENTAL DISORDER
     Route: 048
     Dates: start: 20150611, end: 201506

REACTIONS (5)
  - Arrhythmia [Recovering/Resolving]
  - Logorrhoea [Recovered/Resolved]
  - Agitation [Recovered/Resolved]
  - Akathisia [Recovering/Resolving]
  - Irritability [Recovered/Resolved]

NARRATIVE: CASE EVENT DATE: 20150625
